FAERS Safety Report 4394844-2 (Version None)
Quarter: 2004Q3

REPORT INFORMATION
  Report Type: 
  Country: None (occurrence: None)
  Receive Date: 20040707
  Receipt Date: 20040621
  Transmission Date: 20050211
  Serious: Yes (Disabling)
  Sender: FDA-Public Use
  Company Number: 2003GB00341

PATIENT
  Age: 61 Year
  Sex: Female

DRUGS (3)
  1. MARCAINE [Suspect]
  2. CO-PROXAMOL [Concomitant]
  3. AMITRIPTYLINE HCL [Concomitant]

REACTIONS (8)
  - ARTHRALGIA [None]
  - ARTHROPATHY [None]
  - DRY MOUTH [None]
  - DYSSTASIA [None]
  - FAECAL INCONTINENCE [None]
  - OEDEMA PERIPHERAL [None]
  - URINARY INCONTINENCE [None]
  - VERTIGO [None]
